FAERS Safety Report 6185270-4 (Version None)
Quarter: 2009Q2

REPORT INFORMATION
  Report Type: 
  Country: None (occurrence: None)
  Receive Date: 20090507
  Receipt Date: 20090427
  Transmission Date: 20091009
  Serious: Yes (Death, Hospitalization)
  Sender: FDA-Public Use
  Company Number: DAV-AE-MTX-09-028

PATIENT
  Age: 73 Year
  Sex: Female

DRUGS (8)
  1. METHOTREXATE [Suspect]
     Indication: AXONAL NEUROPATHY
     Dosage: IV 1.5G/SQ M Q2 WKS
     Route: 058
  2. METHOTREXATE [Suspect]
     Dosage: IV 2G/SQ M Q4 WKS
  3. CYCLOPHOSPHAMIDE [Concomitant]
  4. VINCRISTINE SULFATE [Concomitant]
  5. DOXORUBICIN HYDROCHLORIDE [Concomitant]
  6. PREDNISONE [Concomitant]
  7. CHLORAMBUCIL [Concomitant]
  8. METHYLPREDNISOLONE 4MG TAB [Concomitant]

REACTIONS (3)
  - CARDIAC FAILURE ACUTE [None]
  - PERICARDIAL EFFUSION [None]
  - PERICARDITIS [None]
